FAERS Safety Report 9169111 (Version 1)
Quarter: 2013Q1

REPORT INFORMATION
  Report Type: Spontaneous
  Country: DE (occurrence: DE)
  Receive Date: 20130318
  Receipt Date: 20130318
  Transmission Date: 20140127
  Serious: Yes (Hospitalization, Other)
  Sender: FDA-Public Use
  Company Number: DE-BRISTOL-MYERS SQUIBB COMPANY-17191834

PATIENT
  Age: 32 Year
  Sex: Male
  Weight: 122 kg

DRUGS (1)
  1. ABILIFY [Suspect]
     Indication: BIPOLAR DISORDER
     Route: 048
     Dates: start: 2009, end: 20121213

REACTIONS (5)
  - Diabetes mellitus [Recovering/Resolving]
  - Liver function test abnormal [Recovering/Resolving]
  - Hypertension [Recovering/Resolving]
  - Obesity [Unknown]
  - Tobacco abuse [Unknown]
